FAERS Safety Report 11268194 (Version 2)
Quarter: 2015Q3

REPORT INFORMATION
  Report Type: Spontaneous
  Country: CO (occurrence: CO)
  Receive Date: 20150714
  Receipt Date: 20150813
  Transmission Date: 20151125
  Serious: Yes (Life-Threatening, Hospitalization, Disabling)
  Sender: FDA-Public Use
  Company Number: CO-009507513-1507COL005392

PATIENT
  Age: 28 Year
  Sex: Male
  Weight: 65 kg

DRUGS (4)
  1. VICTRELIS [Suspect]
     Active Substance: BOCEPREVIR
     Indication: HEPATITIS C
     Dosage: 2400 MG DAILY
     Route: 048
     Dates: start: 20150606, end: 20150701
  2. FERROUS SULFATE [Concomitant]
     Active Substance: FERROUS SULFATE\FERROUS SULFATE, DRIED
     Dosage: 300 MG, QD
     Route: 048
  3. PEGINTRON [Suspect]
     Active Substance: PEGINTERFERON ALFA-2B
     Indication: HEPATITIS C
     Dosage: 100 MICROGRAM, WEEKLY (QW)
     Dates: start: 20150504, end: 20150701
  4. REBETOL [Suspect]
     Active Substance: RIBAVIRIN
     Indication: HEPATITIS C
     Dosage: 800 MG, QD
     Route: 048
     Dates: start: 20150504, end: 20150701

REACTIONS (4)
  - Vertigo [Unknown]
  - Anaemia [Recovered/Resolved]
  - Platelet count decreased [Recovering/Resolving]
  - Peritonitis [Unknown]

NARRATIVE: CASE EVENT DATE: 2015
